FAERS Safety Report 20738427 (Version 1)
Quarter: 2022Q2

REPORT INFORMATION
  Report Type: Spontaneous
  Country: US (occurrence: None)
  Receive Date: 20220421
  Receipt Date: 20220421
  Transmission Date: 20220721
  Serious: Yes (Death)
  Sender: FDA-Public Use
  Company Number: None

PATIENT
  Sex: Male

DRUGS (3)
  1. CYCLOSPORINE MODIFIED [Suspect]
     Active Substance: CYCLOSPORINE
     Indication: Chronic kidney disease
     Dosage: FREQUENCY : TWICE A DAY; TAKE 2 CAPSULES ALONG WITH ONE 25 MG CAPSULE BY MOUTH TWICE DAILY FOR  TOTA
     Route: 048
     Dates: start: 20200118, end: 20220408
  2. AMOXICILLIN TAB [Concomitant]
  3. CYCLOSPORINE MODIFIED [Concomitant]
     Active Substance: CYCLOSPORINE

REACTIONS (1)
  - Death [None]
